FAERS Safety Report 19239868 (Version 1)
Quarter: 2021Q2

REPORT INFORMATION
  Report Type: Report from Study
  Country: US (occurrence: US)
  Receive Date: 20210511
  Receipt Date: 20210511
  Transmission Date: 20210717
  Serious: Yes (Other)
  Sender: FDA-Public Use
  Company Number: US-BRISTOL-MYERS SQUIBB COMPANY-BMS-2021-044210

PATIENT
  Age: 80 Year
  Sex: Female
  Weight: 79.4 kg

DRUGS (2)
  1. NIVOLUMAB [Suspect]
     Active Substance: NIVOLUMAB
     Indication: ANGIOSARCOMA
     Dosage: 480 MILLIGRAM
     Route: 065
     Dates: start: 20210311
  2. CABOZANTINIB [Suspect]
     Active Substance: CABOZANTINIB
     Indication: ANGIOSARCOMA
     Dosage: 1120 MILLIGRAM
     Route: 065
     Dates: start: 20210311

REACTIONS (1)
  - Syncope [Recovered/Resolved]

NARRATIVE: CASE EVENT DATE: 20210323
